FAERS Safety Report 7685392-2 (Version None)
Quarter: 2011Q3

REPORT INFORMATION
  Report Type: 
  Country: None (occurrence: None)
  Receive Date: 20110816
  Receipt Date: 20110808
  Transmission Date: 20111222
  Serious: Yes (Death, Hospitalization, Other)
  Sender: FDA-Public Use
  Company Number: US-SANOFI-AVENTIS-2011SA051539

PATIENT
  Age: 79 Year
  Sex: Female

DRUGS (10)
  1. BETA BLOCKING AGENTS [Concomitant]
  2. PLATELETS [Concomitant]
  3. ALPHA-ADRENOCEPTOR BLOCKING AGENTS [Concomitant]
  4. HMG COA REDUCTASE INHIBITORS [Concomitant]
  5. BLINDED THERAPY [Suspect]
     Route: 065
     Dates: start: 20110426, end: 20110520
  6. PLATELETS [Concomitant]
  7. LASIX [Suspect]
     Route: 065
  8. INSULIN GLARGINE [Suspect]
     Dosage: DOSE:20 UNIT(S)
     Route: 065
  9. CALCIUM CHANNEL BLOCKERS [Concomitant]
  10. DIURETICS [Concomitant]

REACTIONS (6)
  - RESPIRATORY FAILURE [None]
  - EXTREMITY NECROSIS [None]
  - PNEUMONIA ASPIRATION [None]
  - ANAEMIA [None]
  - SEPTIC SHOCK [None]
  - RENAL FAILURE ACUTE [None]
